FAERS Safety Report 8772375 (Version 3)
Quarter: 2012Q4

REPORT INFORMATION
  Report Type: 
  Country: JP (occurrence: JP)
  Receive Date: 20120905
  Receipt Date: 20120925
  Transmission Date: 20130627
  Serious: Yes (Hospitalization)
  Sender: FDA-Public Use
  Company Number: PHHY2012JP074984

PATIENT
  Age: 34 Year
  Sex: Female

DRUGS (3)
  1. TEGRETOL [Suspect]
     Indication: BIPOLAR DISORDER
     Dosage: 800 mg, daily
     Route: 048
     Dates: start: 20080725
  2. RISPERDAL [Concomitant]
     Indication: BIPOLAR DISORDER
     Dosage: 4 mg, QD
     Route: 048
     Dates: start: 20110226, end: 20110405
  3. EURODIN [Concomitant]
     Indication: BIPOLAR DISORDER
     Dosage: 2 mg, QD
     Route: 048
     Dates: start: 20110325, end: 20110418

REACTIONS (14)
  - Genital haemorrhage [Recovered/Resolved]
  - Labour pain [Recovered/Resolved]
  - Uterine hypertonus [Unknown]
  - Hypomania [Recovered/Resolved]
  - Mania [Recovered/Resolved]
  - Logorrhoea [Recovered/Resolved]
  - Insomnia [Recovered/Resolved]
  - Anxiety [Recovered/Resolved]
  - Agitation [Recovered/Resolved]
  - Abnormal behaviour [Recovered/Resolved]
  - Abdominal pain [Recovered/Resolved]
  - Nausea [Recovered/Resolved]
  - Maternal exposure during pregnancy [Recovered/Resolved]
  - Normal newborn [Recovered/Resolved]
